FAERS Safety Report 13256405 (Version 1)
Quarter: 2017Q1

REPORT INFORMATION
  Report Type: Spontaneous
  Country: FR (occurrence: FR)
  Receive Date: 20170221
  Receipt Date: 20170221
  Transmission Date: 20170428
  Serious: Yes (Death)
  Sender: FDA-Public Use
  Company Number: FR-SA-2017SA028244

PATIENT
  Age: 59 Year
  Sex: Male

DRUGS (13)
  1. DIFFU  K [Concomitant]
     Active Substance: POTASSIUM CHLORIDE
     Dosage: 600  MG,3  DAY(S)
     Route: 048
  2. CORTANCYL [Suspect]
     Active Substance: PREDNISONE
     Route: 048
     Dates: end: 20160703
  3. PAROXETINE. [Concomitant]
     Active Substance: PAROXETINE
     Route: 048
  4. SERETIDE [Concomitant]
     Active Substance: FLUTICASONE PROPIONATE\SALMETEROL XINAFOATE
     Dosage: 2  DAY (S)
     Route: 055
  5. TAHOR [Concomitant]
     Active Substance: ATORVASTATIN CALCIUM
     Dosage: STRENGTH: 40  MG
     Route: 048
  6. PANTOPRAZOLE [Concomitant]
     Active Substance: PANTOPRAZOLE SODIUM
     Route: 048
  7. PLAVIX [Suspect]
     Active Substance: CLOPIDOGREL BISULFATE
     Indication: MYOCARDIAL ISCHAEMIA
     Route: 048
     Dates: end: 20160703
  8. LASILIX  SPECIAL [Concomitant]
     Active Substance: FUROSEMIDE
     Dosage: STRENGTH: 500  MG
     Route: 048
  9. ZELITREX [Concomitant]
     Active Substance: VALACYCLOVIR HYDROCHLORIDE
     Dosage: STRENGTH: 500  MG
     Route: 048
  10. COUMADINE [Suspect]
     Active Substance: WARFARIN SODIUM
     Indication: MYOCARDIAL ISCHAEMIA
     Route: 048
     Dates: end: 20160703
  11. BISOCE [Concomitant]
     Active Substance: BISOPROLOL
     Dosage: 1.25  MG
     Route: 048
  12. LYRICA [Concomitant]
     Active Substance: PREGABALIN
     Dosage: 1  DF,3  DAY (S)
     Route: 048
  13. DAFALGAN [Concomitant]
     Active Substance: ACETAMINOPHEN
     Dosage: 1  G, 3  DAY(S)
     Route: 048

REACTIONS (4)
  - International normalised ratio increased [Fatal]
  - Subdural haematoma [Fatal]
  - Overdose [Fatal]
  - Subarachnoid haemorrhage [Fatal]

NARRATIVE: CASE EVENT DATE: 20160703
